FAERS Safety Report 12394583 (Version 1)
Quarter: 2016Q2

REPORT INFORMATION
  Report Type: Other
  Country: ES (occurrence: ES)
  Receive Date: 20160523
  Receipt Date: 20160523
  Transmission Date: 20160815
  Serious: Yes (Other)
  Sender: FDA-Public Use
  Company Number: ES-ASTELLAS-2016US019584

PATIENT
  Age: 45 Year
  Sex: Female

DRUGS (2)
  1. BETMIGA [Suspect]
     Active Substance: MIRABEGRON
     Dosage: 50 MG, EVERY OTHER DAY (EVERY 2 DAYS)
     Route: 048
  2. BETMIGA [Suspect]
     Active Substance: MIRABEGRON
     Indication: URINARY INCONTINENCE SURGERY
     Route: 048
     Dates: start: 20150130, end: 201508

REACTIONS (3)
  - Off label use [Unknown]
  - Muscle spasms [Recovered/Resolved]
  - Pelvic discomfort [Recovered/Resolved]

NARRATIVE: CASE EVENT DATE: 20150130
